FAERS Safety Report 20469900 (Version 1)
Quarter: 2022Q1

REPORT INFORMATION
  Report Type: Spontaneous
  Country: US (occurrence: US)
  Receive Date: 20220214
  Receipt Date: 20220214
  Transmission Date: 20220424
  Serious: Yes (Other)
  Sender: FDA-Public Use
  Company Number: US-PFIZER INC-202200185625

PATIENT
  Age: 73 Year
  Sex: Male

DRUGS (2)
  1. ERAXIS [Suspect]
     Active Substance: ANIDULAFUNGIN
     Indication: Cardiac disorder
     Dosage: 100 MG (100MG, IV INFUSION, 5 DAYS A WEEK)
     Route: 042
  2. ERAXIS [Suspect]
     Active Substance: ANIDULAFUNGIN
     Dosage: 200 MG, 2X/WEEK (200MG, IV INFUSION, TWICE A WEEK)
     Route: 042

REACTIONS (10)
  - Drug dependence [Unknown]
  - Fungal skin infection [Recovered/Resolved]
  - Illness [Unknown]
  - Erythema [Unknown]
  - Rash [Unknown]
  - Asthenia [Unknown]
  - Lethargy [Unknown]
  - Bladder candidiasis [Unknown]
  - Bacterial infection [Unknown]
  - Off label use [Unknown]
